FAERS Safety Report 10664046 (Version 1)
Quarter: 2014Q4

REPORT INFORMATION
  Report Type: Spontaneous
  Country: US (occurrence: None)
  Receive Date: 20141218
  Receipt Date: 20141218
  Transmission Date: 20150529
  Serious: Yes (Other)
  Sender: FDA-Public Use
  Company Number: None

PATIENT
  Age: 42 Year
  Sex: Female
  Weight: 74.39 kg

DRUGS (5)
  1. EFFEXOR [Concomitant]
     Active Substance: VENLAFAXINE HYDROCHLORIDE
  2. RISPERDAL [Suspect]
     Active Substance: RISPERIDONE
     Indication: BORDERLINE PERSONALITY DISORDER
     Dosage: 1 MG @ NIGHT, AT BEDTIME, TAKEN BY MOUTH
     Route: 048
  3. TAMAZEPAM [Concomitant]
     Active Substance: TEMAZEPAM
  4. XANAX [Concomitant]
     Active Substance: ALPRAZOLAM
  5. LEVOTHYROXINE [Concomitant]
     Active Substance: LEVOTHYROXINE

REACTIONS (5)
  - Weight increased [None]
  - Memory impairment [None]
  - Somnambulism [None]
  - Binge eating [None]
  - Drug interaction [None]
